FAERS Safety Report 7555199-5 (Version None)
Quarter: 2011Q2

REPORT INFORMATION
  Report Type: 
  Country: None (occurrence: None)
  Receive Date: 20110617
  Receipt Date: 20110607
  Transmission Date: 20111010
  Serious: Yes (Hospitalization, Other)
  Sender: FDA-Public Use
  Company Number: PHHY2010US81222

PATIENT
  Age: 42 Year
  Sex: Female
  Weight: 109 kg

DRUGS (13)
  1. ENALAPRIL MALEATE [Concomitant]
     Dosage: 10 MG, DAILY
     Route: 048
  2. HYDROCHLOROTHIAZIDE [Concomitant]
     Dosage: 25 MG, DAILY
     Route: 048
  3. VENLAFAXINE HCL [Concomitant]
  4. CLOZAPINE [Suspect]
     Indication: SCHIZOPHRENIA, PARANOID TYPE
  5. BROMOCRYPTINE MESYLATE [Concomitant]
     Dosage: 5 MG, TID
  6. DIVALPROEX SODIUM [Concomitant]
     Dosage: 1500 MG, DAILY (1000 MG IN THE MORNING AND 500 MG IN THE EVENING)
     Route: 048
  7. AMLODIPINE BESYLATE [Concomitant]
     Dosage: 10 MG, DAILY
     Route: 048
  8. GLYBURIDE [Concomitant]
     Dosage: 2.5 MG, DAILY
     Route: 048
  9. PIOGLITAZONE HCL [Concomitant]
     Dosage: 30 MG, DAILY
     Route: 048
  10. FEXOFENADINE HCL [Concomitant]
     Dosage: 60 MG, DAILY
     Route: 048
  11. PALIPERIDONE [Concomitant]
     Dosage: 3 MG, BEDTIME
     Route: 048
  12. ARIPIPRAZOLE [Concomitant]
     Dosage: 30 MG, QD
     Route: 048
  13. PALIPERIDONE [Concomitant]
     Dosage: 9 MG, BEDTIME

REACTIONS (51)
  - OXYGEN SATURATION DECREASED [None]
  - BLOOD CREATINE PHOSPHOKINASE MB [None]
  - DECREASED APPETITE [None]
  - ABDOMINAL TENDERNESS [None]
  - HYPOMAGNESAEMIA [None]
  - DYSPNOEA [None]
  - URINARY RETENTION [None]
  - OXYGEN CONSUMPTION INCREASED [None]
  - INSPIRATORY CAPACITY DECREASED [None]
  - OLIGURIA [None]
  - LETHARGY [None]
  - LUNG INFILTRATION [None]
  - LOGORRHOEA [None]
  - BODY TEMPERATURE INCREASED [None]
  - HYPOKALAEMIA [None]
  - DYSPHAGIA [None]
  - MUSCLE RIGIDITY [None]
  - AUTONOMIC NERVOUS SYSTEM IMBALANCE [None]
  - MYOGLOBIN URINE PRESENT [None]
  - NEUROLEPTIC MALIGNANT SYNDROME [None]
  - MENTAL STATUS CHANGES [None]
  - CONFUSIONAL STATE [None]
  - BLOOD UREA INCREASED [None]
  - STARING [None]
  - CHILLS [None]
  - HYPERHIDROSIS [None]
  - ANXIETY [None]
  - WHEEZING [None]
  - PYREXIA [None]
  - ENCEPHALOPATHY [None]
  - BLOOD CREATINE PHOSPHOKINASE INCREASED [None]
  - BLOOD PRESSURE INCREASED [None]
  - HYPERTHERMIA [None]
  - RENAL FAILURE ACUTE [None]
  - RHABDOMYOLYSIS [None]
  - ACUTE RESPIRATORY DISTRESS SYNDROME [None]
  - CATATONIA [None]
  - MUSCLE INJURY [None]
  - ASTHENIA [None]
  - MUSCULAR WEAKNESS [None]
  - ABNORMAL BEHAVIOUR [None]
  - TREMOR [None]
  - DRUG INTOLERANCE [None]
  - AGITATION [None]
  - PAIN IN EXTREMITY [None]
  - BLOOD CREATININE INCREASED [None]
  - HEART RATE INCREASED [None]
  - LEUKOCYTOSIS [None]
  - PNEUMONIA ASPIRATION [None]
  - PNEUMONIA [None]
  - PRODUCTIVE COUGH [None]
